FAERS Safety Report 7535716-1 (Version None)
Quarter: 2011Q2

REPORT INFORMATION
  Report Type: 
  Country: None (occurrence: None)
  Receive Date: 20110602
  Receipt Date: 20110518
  Transmission Date: 20111010
  Serious: Yes (Other)
  Sender: FDA-Public Use
  Company Number: US-1186288

PATIENT
  Age: 52 Year
  Sex: Male

DRUGS (1)
  1. LATANOPROST [Suspect]
     Dosage: (OPHTHALMIC)
     Route: 047
     Dates: start: 20110513, end: 20110516

REACTIONS (3)
  - VISUAL ACUITY REDUCED [None]
  - ULCERATIVE KERATITIS [None]
  - CORNEAL OEDEMA [None]
